FAERS Safety Report 4697496-7 (Version None)
Quarter: 2005Q2

REPORT INFORMATION
  Report Type: 
  Country: None (occurrence: None)
  Receive Date: 20050622
  Receipt Date: 20050504
  Transmission Date: 20051028
  Serious: Yes (Death)
  Sender: FDA-Public Use
  Company Number: GB-MERCK-0505GBR00060

PATIENT
  Sex: Male

DRUGS (22)
  1. DECADRON [Suspect]
     Route: 065
  2. ALBUTEROL SULFATE AND IPRATROPIUM BROMIDE [Suspect]
     Route: 055
  3. TIOTROPIUM BROMIDE [Suspect]
     Route: 055
  4. ALBUTEROL [Suspect]
     Route: 055
  5. ASPIRIN [Suspect]
     Route: 065
  6. ATORVASTATIN CALCIUM [Suspect]
     Route: 065
  7. BECLOMETHASONE DIPROPIONATE [Suspect]
     Route: 055
  8. FUROSEMIDE [Suspect]
     Route: 065
  9. DILTIAZEM HYDROCHLORIDE [Suspect]
     Route: 065
  10. DOTHIEPIN HYDROCHLORIDE [Suspect]
     Route: 065
  11. ALUMINUM HYDROXIDE AND MAGNESIUM TRISILICATE [Suspect]
     Route: 065
  12. LACTULOSE [Suspect]
     Route: 065
  13. LANSOPRAZOLE [Suspect]
     Route: 065
  14. METOCLOPRAMIDE [Suspect]
     Route: 065
  15. NITROGLYCERIN [Suspect]
     Route: 065
  16. LEVOMEPROMAZINE [Suspect]
     Route: 065
  17. OXYCODONE [Suspect]
     Route: 065
  18. OXYGEN [Suspect]
     Route: 055
  19. SPIRONOLACTONE [Suspect]
     Route: 065
  20. BUDESONIDE AND FORMOTEROL FUMARATE [Suspect]
     Route: 055
  21. TEMAZEPAM [Suspect]
     Route: 065
  22. AMILORIDE HYDROCHLORIDE AND FUROSEMIDE [Suspect]
     Route: 065

REACTIONS (1)
  - MESOTHELIOMA [None]
